FAERS Safety Report 6527935-8 (Version None)
Quarter: 2009Q4

REPORT INFORMATION
  Report Type: 
  Country: None (occurrence: None)
  Receive Date: 20091229
  Receipt Date: 20091222
  Transmission Date: 20100525
  Serious: Yes (Hospitalization)
  Sender: FDA-Public Use
  Company Number: 2009SP043165

PATIENT

DRUGS (2)
  1. REMERON [Suspect]
     Indication: DEPRESSION
     Dosage: PO 45 MG; QD; PO
     Route: 048
     Dates: start: 20090101
  2. REMERON [Suspect]
     Indication: DEPRESSION
     Dosage: PO 45 MG; QD; PO
     Route: 048
     Dates: start: 20090101

REACTIONS (2)
  - BLOOD POTASSIUM DECREASED [None]
  - DECREASED APPETITE [None]
